FAERS Safety Report 11122157 (Version 1)
Quarter: 2015Q2

REPORT INFORMATION
  Report Type: Spontaneous
  Country: US (occurrence: None)
  Receive Date: 20150518
  Receipt Date: 20150518
  Transmission Date: 20150821
  Serious: No
  Sender: FDA-Public Use
  Company Number: None

PATIENT
  Age: 9 Year
  Sex: Male
  Weight: 27.22 kg

DRUGS (1)
  1. METHYLPHENIDATE ER 27MG ER [Suspect]
     Active Substance: METHYLPHENIDATE
     Indication: ATTENTION DEFICIT/HYPERACTIVITY DISORDER
     Dosage: 1, ONCE DAILY, TAKEN BY MOUTH
     Route: 048
     Dates: start: 20150512, end: 20150512

REACTIONS (6)
  - Attention deficit/hyperactivity disorder [None]
  - Condition aggravated [None]
  - Product substitution issue [None]
  - Pyrexia [None]
  - Product quality issue [None]
  - Myalgia [None]

NARRATIVE: CASE EVENT DATE: 20150512
